FAERS Safety Report 10205555 (Version 1)
Quarter: 2014Q2

REPORT INFORMATION
  Report Type: Spontaneous
  Country: PH (occurrence: PH)
  Receive Date: 20140529
  Receipt Date: 20140529
  Transmission Date: 20141212
  Serious: Yes (Death, Other)
  Sender: FDA-Public Use
  Company Number: PH-009507513-1405PHL014093

PATIENT
  Age: 55 Year
  Sex: Female

DRUGS (1)
  1. JANUMET [Suspect]
     Indication: DIABETES MELLITUS
     Dosage: ONE TABLET ONCE A DAY, 50/500 MG
     Route: 048

REACTIONS (4)
  - Neoplasm malignant [Fatal]
  - Metastases to central nervous system [Fatal]
  - Brain neoplasm malignant [Fatal]
  - Inappropriate schedule of drug administration [Unknown]
